FAERS Safety Report 14364788 (Version 3)
Quarter: 2018Q1

REPORT INFORMATION
  Report Type: Report from Study
  Country: US (occurrence: US)
  Receive Date: 20180108
  Receipt Date: 20180301
  Transmission Date: 20180509
  Serious: Yes (Hospitalization, Other)
  Sender: FDA-Public Use
  Company Number: US-ACTELION-A-US2018-165214

PATIENT
  Age: 2 Year
  Sex: Female

DRUGS (17)
  1. COUMADIN [Concomitant]
     Active Substance: WARFARIN SODIUM
  2. ACETAMINOPHEN. [Concomitant]
     Active Substance: ACETAMINOPHEN
  3. CHLOROTHIAZIDE. [Concomitant]
     Active Substance: CHLOROTHIAZIDE
  4. ALDACTONE [Concomitant]
     Active Substance: SPIRONOLACTONE
  5. FUROSEMIDE. [Concomitant]
     Active Substance: FUROSEMIDE
  6. BECLOMETHASONE [Concomitant]
     Active Substance: BECLOMETHASONE
  7. ALBUTEROL HFA [Concomitant]
     Active Substance: ALBUTEROL SULFATE
  8. LACTULOSE. [Concomitant]
     Active Substance: LACTULOSE
  9. RANITIDINE. [Concomitant]
     Active Substance: RANITIDINE
  10. TRACLEER [Suspect]
     Active Substance: BOSENTAN
     Indication: PULMONARY HYPERTENSION
     Dosage: 15.625 MG, BID
     Route: 048
     Dates: start: 20171209
  11. SILDENAFIL. [Concomitant]
     Active Substance: SILDENAFIL
  12. ARGININE [Concomitant]
     Active Substance: ARGININE
  13. ESOMEPRAZOLE MAGNESIUM. [Concomitant]
     Active Substance: ESOMEPRAZOLE MAGNESIUM
  14. SOTALOL. [Concomitant]
     Active Substance: SOTALOL
  15. DIURIL [Concomitant]
     Active Substance: CHLOROTHIAZIDE
  16. PERIACTIN [Concomitant]
     Active Substance: CYPROHEPTADINE HYDROCHLORIDE
  17. POLYETHYLENE GLYCOL 3350. [Concomitant]
     Active Substance: POLYETHYLENE GLYCOL 3350

REACTIONS (16)
  - Fluid retention [Recovering/Resolving]
  - Transfusion [Unknown]
  - Vomiting [Unknown]
  - Condition aggravated [Unknown]
  - Pulmonary hypertension [Unknown]
  - Cellulitis [Unknown]
  - Hypoxia [Recovering/Resolving]
  - Hepatomegaly [Unknown]
  - Anaemia [Unknown]
  - Abdominal distension [Recovering/Resolving]
  - Rotavirus infection [Unknown]
  - Pyrexia [Unknown]
  - Cardiomegaly [Unknown]
  - Postoperative wound infection [Recovered/Resolved]
  - Hepatic congestion [Unknown]
  - Pulmonary oedema [Unknown]

NARRATIVE: CASE EVENT DATE: 20171219
